FAERS Safety Report 10610864 (Version 1)
Quarter: 2014Q4

REPORT INFORMATION
  Report Type: Spontaneous
  Country: US (occurrence: None)
  Receive Date: 20141124
  Receipt Date: 20141124
  Transmission Date: 20150529
  Serious: Yes (Other)
  Sender: FDA-Public Use
  Company Number: KAD201410-001252

PATIENT
  Age: 65 Year
  Sex: Female

DRUGS (2)
  1. INTERFERON ALFACON-1 [Suspect]
     Active Substance: INTERFERON ALFACON-1
     Indication: HEPATITIS C
  2. RIBAVIRIN (RIBAVIRIN) [Suspect]
     Active Substance: RIBAVIRIN
     Indication: HEPATITIS C

REACTIONS (12)
  - Dry mouth [None]
  - Depression [None]
  - White blood cell count abnormal [None]
  - Hepatic cirrhosis [None]
  - Aphasia [None]
  - Tooth loss [None]
  - Joint destruction [None]
  - Mental impairment [None]
  - Platelet disorder [None]
  - Dental caries [None]
  - Fluid retention [None]
  - Arthralgia [None]
